FAERS Safety Report 4786001-2 (Version None)
Quarter: 2005Q4

REPORT INFORMATION
  Report Type: 
  Country: None (occurrence: None)
  Receive Date: 20051003
  Receipt Date: 20050810
  Transmission Date: 20060501
  Serious: Yes (Life-Threatening, Hospitalization)
  Sender: FDA-Public Use
  Company Number: 200512318JP

PATIENT
  Age: 68 Year
  Sex: Male
  Weight: 59 kg

DRUGS (2)
  1. AMARYL [Suspect]
     Route: 048
     Dates: start: 20050708, end: 20050805
  2. ATELEC [Concomitant]
     Route: 048
     Dates: start: 19990601, end: 20050805

REACTIONS (1)
  - MYELODYSPLASTIC SYNDROME [None]
